FAERS Safety Report 7511105-0 (Version None)
Quarter: 2011Q2

REPORT INFORMATION
  Report Type: 
  Country: None (occurrence: None)
  Receive Date: 20110531
  Receipt Date: 20110517
  Transmission Date: 20111010
  Serious: Yes (Death)
  Sender: FDA-Public Use
  Company Number: US-CELGENEUS-163-21880-11050365

PATIENT
  Sex: Female

DRUGS (6)
  1. ZANTAC [Concomitant]
     Indication: DYSPEPSIA
     Route: 048
  2. REVLIMID [Suspect]
     Indication: MYELOFIBROSIS
     Dosage: 10 MILLIGRAM
     Route: 048
     Dates: start: 20110118, end: 20110207
  3. DEPAKOTE [Concomitant]
     Route: 048
  4. FOSAMAX [Concomitant]
     Indication: OSTEOPOROSIS
     Route: 048
  5. PHENOBARBITAL TAB [Concomitant]
     Route: 048
  6. M.V.I. [Concomitant]
     Indication: SUPPLEMENTATION THERAPY
     Route: 048

REACTIONS (1)
  - DEATH [None]
